FAERS Safety Report 10364992 (Version 1)
Quarter: 2014Q3

REPORT INFORMATION
  Report Type: Spontaneous
  Country: US (occurrence: None)
  Receive Date: 20140804
  Receipt Date: 20140804
  Transmission Date: 20150326
  Serious: Yes (Death, Hospitalization)
  Sender: FDA-Public Use
  Company Number: FK201402983

PATIENT
  Age: 73 Year
  Sex: Male
  Weight: 59.8 kg

DRUGS (14)
  1. ALLOPURINOL (ALLOPURINOL) [Concomitant]
     Active Substance: ALLOPURINOL
  2. JANUVIA [Concomitant]
     Active Substance: SITAGLIPTIN PHOSPHATE
  3. TAMSULOSIN(TAMSULOSIN) [Concomitant]
  4. STERILE VANCOMYCIN HYDROCHLORIDE [Suspect]
     Active Substance: VANCOMYCIN HYDROCHLORIDE
     Indication: DEVICE RELATED INFECTION
     Route: 042
     Dates: start: 20140705, end: 20140705
  5. ALBUTEROL SULFATE (SALBUTAMOL SULFATE) [Concomitant]
     Active Substance: ALBUTEROL SULFATE
  6. WARFARIN (WARFARIN) [Concomitant]
     Active Substance: WARFARIN
  7. HYDRALAZINE [Concomitant]
     Active Substance: HYDRALAZINE HYDROCHLORIDE
  8. LEVOTHYROXINE [Concomitant]
     Active Substance: LEVOTHYROXINE
  9. FOLIC ACID(FOLIC ACID) [Concomitant]
  10. FLUTICASONE [Concomitant]
     Active Substance: FLUTICASONE\FLUTICASONE PROPIONATE
  11. MONTELUKAST [Concomitant]
     Active Substance: MONTELUKAST SODIUM
  12. MULTAQ [Concomitant]
     Active Substance: DRONEDARONE
  13. SPIRIVA [Concomitant]
     Active Substance: TIOTROPIUM BROMIDE MONOHYDRATE
  14. OMEPRAZOLE(OMEPRAZOLE) [Concomitant]
     Active Substance: OMEPRAZOLE

REACTIONS (2)
  - Dyspnoea [None]
  - Cyanosis [None]

NARRATIVE: CASE EVENT DATE: 20140705
